FAERS Safety Report 18594820 (Version 3)
Quarter: 2021Q3

REPORT INFORMATION
  Report Type: Spontaneous
  Country: US (occurrence: US)
  Receive Date: 20201209
  Receipt Date: 20210928
  Transmission Date: 20211014
  Serious: No
  Sender: FDA-Public Use
  Company Number: US-SA-2020SA349521

PATIENT
  Age: 51 Year
  Sex: Female

DRUGS (2)
  1. DUPIXENT [Suspect]
     Active Substance: DUPILUMAB
     Indication: NASAL POLYPS
     Dosage: 300 MG, QOW
     Route: 058
     Dates: start: 20200904
  2. DUPIXENT [Suspect]
     Active Substance: DUPILUMAB
     Indication: ASTHMA

REACTIONS (11)
  - Tachyphrenia [Unknown]
  - Irritability [Unknown]
  - Myalgia [Unknown]
  - Arthralgia [Unknown]
  - Product use issue [Unknown]
  - General physical condition abnormal [Unknown]
  - Eye irritation [Unknown]
  - Initial insomnia [Unknown]
  - Impatience [Unknown]
  - Dry eye [Unknown]
  - Mental disorder [Unknown]

NARRATIVE: CASE EVENT DATE: 20200904
